FAERS Safety Report 18126310 (Version 2)
Quarter: 2021Q2

REPORT INFORMATION
  Report Type: Spontaneous
  Country: US (occurrence: US)
  Receive Date: 20200808
  Receipt Date: 20210520
  Transmission Date: 20210717
  Serious: Yes (Hospitalization)
  Sender: FDA-Public Use
  Company Number: US-TAKEDA-2020TUS033889

PATIENT
  Age: 83 Year
  Sex: Male
  Weight: 89.4 kg

DRUGS (1)
  1. VELCADE [Suspect]
     Active Substance: BORTEZOMIB
     Indication: PLASMA CELL MYELOMA
     Dosage: 2.7 MILLIGRAM, 1/WEEK
     Route: 058
     Dates: start: 20180101

REACTIONS (6)
  - Hypotension [Unknown]
  - Asthenia [Unknown]
  - Product dose omission issue [Unknown]
  - Fatigue [Unknown]
  - Urinary tract infection [Unknown]
  - Dyspnoea [Unknown]

NARRATIVE: CASE EVENT DATE: 20200717
